FAERS Safety Report 19562216 (Version 3)
Quarter: 2022Q1

REPORT INFORMATION
  Report Type: Report from Study
  Country: CN (occurrence: CN)
  Receive Date: 20210715
  Receipt Date: 20220308
  Transmission Date: 20220424
  Serious: Yes (Other)
  Sender: FDA-Public Use
  Company Number: CN-TAKEDA-2021TUS042843

PATIENT
  Age: 50 Year
  Sex: Male
  Weight: 78 kg

DRUGS (15)
  1. IXAZOMIB [Suspect]
     Active Substance: IXAZOMIB
     Indication: Plasma cell myeloma
     Dosage: 4 MILLIGRAM
     Route: 048
     Dates: start: 20210226
  2. DEXAMETHASONE [Concomitant]
     Active Substance: DEXAMETHASONE
     Indication: Plasma cell myeloma
     Dosage: 20 MILLIGRAM
     Route: 048
     Dates: start: 20210226
  3. ALFACALCIDOL [Concomitant]
     Active Substance: ALFACALCIDOL
     Indication: Prophylaxis
     Dosage: 0.25 MICROGRAM, QD
     Route: 048
     Dates: start: 20210118
  4. CALTRATE WITH VITAMIN D [Concomitant]
     Active Substance: CALCIUM CARBONATE\CHOLECALCIFEROL
     Indication: Prophylaxis
     Dosage: 0.6 GRAM, QD
     Route: 048
     Dates: start: 20210118
  5. FAMCICLOVIR [Concomitant]
     Active Substance: FAMCICLOVIR
     Indication: Prophylaxis
     Dosage: 0.25 GRAM, TID
     Route: 048
     Dates: start: 20201216
  6. FLUCONAZOLE [Concomitant]
     Active Substance: FLUCONAZOLE
     Indication: Prophylaxis
     Dosage: 150 MILLIGRAM, QD
     Route: 048
     Dates: start: 20210226
  7. INSULIN GLULISINE [Concomitant]
     Active Substance: INSULIN GLULISINE
     Dosage: UNK
     Route: 042
     Dates: start: 20210226
  8. POTASSIUM CHLORIDE [Concomitant]
     Active Substance: POTASSIUM CHLORIDE
     Indication: Prophylaxis
     Dosage: 1 GRAM, TID
     Route: 048
     Dates: start: 20210125
  9. NEUROTROPIN [Concomitant]
     Active Substance: NEUROTROPIN
     Dosage: 9 MILLILITER, QD
     Route: 042
     Dates: start: 20210326, end: 20210426
  10. ATORVASTATIN CALCIUM [Concomitant]
     Active Substance: ATORVASTATIN CALCIUM
     Indication: Prophylaxis
     Dosage: 20 MILLIGRAM
     Route: 048
     Dates: start: 20210409
  11. METHYLCOBALAMIN [Concomitant]
     Active Substance: METHYLCOBALAMIN
     Dosage: 3 MILLIGRAM, QD
     Route: 042
     Dates: start: 20210326, end: 20210426
  12. GRANULOCYTE COLONY-STIMULATING FACTOR NOS [Concomitant]
     Active Substance: GRANULOCYTE COLONY-STIMULATING FACTOR NOS
     Indication: Prophylaxis
     Dosage: 1.5 MILLILITER, BID
     Route: 058
     Dates: start: 20210403, end: 20210407
  13. LEVOCARNITINE [Concomitant]
     Active Substance: LEVOCARNITINE
     Indication: Prophylaxis
     Dosage: 5 MILLILITER, QD
     Route: 042
     Dates: start: 20210405, end: 20210423
  14. CEFOPERAZONE SODIUM\SULBACTAM SODIUM [Concomitant]
     Active Substance: CEFOPERAZONE SODIUM\SULBACTAM SODIUM
     Indication: Prophylaxis
     Dosage: 3 GRAM
     Route: 042
     Dates: start: 20210406, end: 20210415
  15. ZOLPIDEM [Concomitant]
     Active Substance: ZOLPIDEM TARTRATE
     Dosage: UNK
     Route: 058
     Dates: start: 20210407, end: 20210407

REACTIONS (8)
  - Hypokalaemia [Recovered/Resolved]
  - Hypocalcaemia [Recovered/Resolved]
  - Pyrexia [Recovered/Resolved]
  - Sinus tachycardia [Recovered/Resolved]
  - Diarrhoea [Recovered/Resolved]
  - Constipation [Recovered/Resolved]
  - Rash [Recovered/Resolved]
  - Off label use [Unknown]

NARRATIVE: CASE EVENT DATE: 20210226
